FAERS Safety Report 6121524-5 (Version None)
Quarter: 2009Q1

REPORT INFORMATION
  Report Type: 
  Country: None (occurrence: None)
  Receive Date: 20090317
  Receipt Date: 20090312
  Transmission Date: 20090719
  Serious: Yes (Other)
  Sender: FDA-Public Use
  Company Number: US-JNJFOC-20090303459

PATIENT
  Sex: Female
  Weight: 62.6 kg

DRUGS (10)
  1. DURAGESIC-100 [Suspect]
     Indication: MYALGIA
     Route: 062
  2. DURAGESIC-100 [Suspect]
     Indication: PAIN
     Route: 062
  3. COUMADIN [Concomitant]
     Indication: ANTICOAGULANT THERAPY
     Route: 048
  4. PREVACID [Concomitant]
     Indication: GASTRIC DISORDER
     Route: 048
  5. LORAZEPAM [Concomitant]
     Indication: ANXIETY
     Dosage: 1 AT NIGHT
     Route: 048
  6. PREMARIN [Concomitant]
     Indication: HORMONE LEVEL ABNORMAL
     Route: 048
  7. COZAAR [Concomitant]
     Indication: HYPERTENSION
     Route: 048
  8. REQUIP [Concomitant]
     Indication: RESTLESS LEGS SYNDROME
     Dosage: 1 AT NIGHT
     Route: 048
  9. POTASSIUM CHLORIDE [Concomitant]
     Indication: BLOOD POTASSIUM DECREASED
     Route: 048
  10. PROZAC [Concomitant]
     Indication: DEPRESSION
     Route: 048

REACTIONS (2)
  - HERPES ZOSTER [None]
  - WRONG TECHNIQUE IN DRUG USAGE PROCESS [None]
